FAERS Safety Report 17297607 (Version 1)
Quarter: 2020Q1

REPORT INFORMATION
  Report Type: Report from Study
  Country: US (occurrence: US)
  Receive Date: 20200121
  Receipt Date: 20200121
  Transmission Date: 20200409
  Serious: Yes (Other)
  Sender: FDA-Public Use
  Company Number: US-UCBSA-2020001730

PATIENT
  Age: 62 Year
  Sex: Female
  Weight: 102 kg

DRUGS (3)
  1. LEVETIRACETAM. [Suspect]
     Active Substance: LEVETIRACETAM
     Dosage: 1000 MG TABLET 1 AM AND 1.5 IN PM
  2. LEVETIRACETAM. [Suspect]
     Active Substance: LEVETIRACETAM
     Dosage: 1000 MG TABLET 1 AM AND 2 IN PM
  3. LEVETIRACETAM. [Suspect]
     Active Substance: LEVETIRACETAM
     Indication: SEIZURE
     Dosage: 1000 MILLIGRAM, 2X/DAY (BID)

REACTIONS (6)
  - Seizure [Unknown]
  - Blood magnesium decreased [Unknown]
  - Off label use [Unknown]
  - Urinary incontinence [Unknown]
  - Generalised tonic-clonic seizure [Unknown]
  - Hypoaesthesia [Unknown]

NARRATIVE: CASE EVENT DATE: 20200106
